FAERS Safety Report 18256988 (Version 1)
Quarter: 2020Q3

REPORT INFORMATION
  Report Type: Report from Study
  Country: AU (occurrence: AU)
  Receive Date: 20200911
  Receipt Date: 20200911
  Transmission Date: 20201103
  Serious: Yes (Hospitalization, Other)
  Sender: FDA-Public Use
  Company Number: AU-ALS-000097

PATIENT
  Age: 63 Year
  Sex: Male

DRUGS (1)
  1. METFORMIN [Suspect]
     Active Substance: METFORMIN HYDROCHLORIDE
     Indication: PRODUCT USED FOR UNKNOWN INDICATION
     Dosage: 500 MG, IMMEDIATE?RELEASE (IR) FORMULATION, TWICE DAILY FOR 6 WEEKS
     Route: 065

REACTIONS (2)
  - Abdominal adhesions [Unknown]
  - Intestinal obstruction [Unknown]
